FAERS Safety Report 6487290-9 (Version None)
Quarter: 2009Q4

REPORT INFORMATION
  Report Type: 
  Country: None (occurrence: None)
  Receive Date: 20091210
  Receipt Date: 20091201
  Transmission Date: 20100525
  Serious: Yes (Other)
  Sender: FDA-Public Use
  Company Number: FI-ROCHE-672358

PATIENT
  Age: 30 Year
  Sex: Male

DRUGS (3)
  1. XELODA [Suspect]
     Route: 048
     Dates: end: 20090201
  2. GEMCITABINE [Concomitant]
     Dates: end: 20090201
  3. AVASTIN [Concomitant]

REACTIONS (1)
  - DISEASE PROGRESSION [None]
